FAERS Safety Report 10366519 (Version 2)
Quarter: 2014Q3

REPORT INFORMATION
  Report Type: Spontaneous
  Country: GB (occurrence: GB)
  Receive Date: 20140806
  Receipt Date: 20140819
  Transmission Date: 20150326
  Serious: Yes (Disabling, Other)
  Sender: FDA-Public Use
  Company Number: GB-PFIZER INC-2014214502

PATIENT
  Age: 64 Year
  Sex: Female

DRUGS (5)
  1. RAMIPRIL. [Concomitant]
     Active Substance: RAMIPRIL
     Dosage: 5 MG, 1X/DAY
  2. GTN [Concomitant]
     Active Substance: NITROGLYCERIN
     Dosage: 400 UG, ONCE DAILY AS NEEDED
  3. BISOPROLOL [Concomitant]
     Active Substance: BISOPROLOL
     Dosage: 2.5 MG, 1X/DAY
  4. ATORVASTATIN CALCIUM. [Suspect]
     Active Substance: ATORVASTATIN CALCIUM
     Indication: CHEST PAIN
     Dosage: 20 MG, 1X/DAY
     Route: 048
     Dates: start: 20140711
  5. ASPIRIN. [Concomitant]
     Active Substance: ASPIRIN
     Dosage: 75 MG, 1X/DAY

REACTIONS (5)
  - Myopathy [Unknown]
  - Hypertension [Unknown]
  - Pain in extremity [Unknown]
  - Muscular weakness [Unknown]
  - Limb discomfort [Unknown]
